FAERS Safety Report 19935519 (Version 4)
Quarter: 2022Q2

REPORT INFORMATION
  Report Type: Report from Study
  Country: US (occurrence: US)
  Receive Date: 20211009
  Receipt Date: 20220419
  Transmission Date: 20220721
  Serious: No
  Sender: FDA-Public Use
  Company Number: NVSC2021US230960

PATIENT
  Sex: Male

DRUGS (2)
  1. COSENTYX [Suspect]
     Active Substance: SECUKINUMAB
     Indication: Psoriasis
     Dosage: 300 MG, QW (Q 1 WEEK FOR 5 WEEKS, Q 4 WEEKS THEREAFTER)
     Route: 058
  2. COSENTYX [Suspect]
     Active Substance: SECUKINUMAB
     Dosage: UNK UNK, QMO (300 ?G (MICROGRAM)
     Route: 058

REACTIONS (4)
  - Disease progression [Unknown]
  - Pigmentation disorder [Unknown]
  - Drug ineffective [Unknown]
  - Incorrect dose administered [Unknown]
